FAERS Safety Report 8089366-1 (Version None)
Quarter: 2012Q1

REPORT INFORMATION
  Report Type: 
  Country: None (occurrence: None)
  Receive Date: 20120128
  Receipt Date: 20110712
  Transmission Date: 20120608
  Serious: No
  Sender: FDA-Public Use
  Company Number: US-ABBOTT-11P-163-0835797-00

PATIENT
  Sex: Female
  Weight: 118.04 kg

DRUGS (5)
  1. CYMBALTA [Concomitant]
     Indication: ANXIETY
  2. HUMIRA [Suspect]
     Indication: PSORIASIS
     Route: 058
     Dates: start: 20110610, end: 20110610
  3. HUMIRA [Suspect]
     Route: 058
     Dates: start: 20110624
  4. CYMBALTA [Concomitant]
     Indication: DEPRESSION
     Route: 048
  5. CYMBALTA [Concomitant]

REACTIONS (7)
  - PARAESTHESIA [None]
  - MUSCLE SPASMS [None]
  - ABDOMINAL PAIN [None]
  - HYPOAESTHESIA [None]
  - MUSCULAR WEAKNESS [None]
  - RECTAL HAEMORRHAGE [None]
  - FATIGUE [None]
